FAERS Safety Report 4885797-9 (Version None)
Quarter: 2006Q1

REPORT INFORMATION
  Report Type: 
  Country: None (occurrence: None)
  Receive Date: 20060117
  Receipt Date: 20060105
  Transmission Date: 20060701
  Serious: Yes (Disabling)
  Sender: FDA-Public Use
  Company Number: GBWYE167423NOV05

PATIENT
  Age: 47 Year
  Sex: Male

DRUGS (12)
  1. EFFEXOR XR [Suspect]
     Indication: ANXIETY
     Dosage: 75 MG 1X PER 1 DAY, 150 MG 1X PER 1 DAY, 75 MG 1X PER 1 DAY, 37.5 MG 1X PER 1 DAY
     Route: 048
     Dates: start: 20000901, end: 20010301
  2. EFFEXOR XR [Suspect]
     Indication: DEPRESSION
     Dosage: 75 MG 1X PER 1 DAY, 150 MG 1X PER 1 DAY, 75 MG 1X PER 1 DAY, 37.5 MG 1X PER 1 DAY
     Route: 048
     Dates: start: 20000901, end: 20010301
  3. EFFEXOR XR [Suspect]
     Indication: DYSTHYMIC DISORDER
     Dosage: 75 MG 1X PER 1 DAY, 150 MG 1X PER 1 DAY, 75 MG 1X PER 1 DAY, 37.5 MG 1X PER 1 DAY
     Route: 048
     Dates: start: 20000901, end: 20010301
  4. EFFEXOR XR [Suspect]
     Indication: ANXIETY
     Dosage: 75 MG 1X PER 1 DAY, 150 MG 1X PER 1 DAY, 75 MG 1X PER 1 DAY, 37.5 MG 1X PER 1 DAY
     Route: 048
     Dates: start: 20010301, end: 20010401
  5. EFFEXOR XR [Suspect]
     Indication: DEPRESSION
     Dosage: 75 MG 1X PER 1 DAY, 150 MG 1X PER 1 DAY, 75 MG 1X PER 1 DAY, 37.5 MG 1X PER 1 DAY
     Route: 048
     Dates: start: 20010301, end: 20010401
  6. EFFEXOR XR [Suspect]
     Indication: DYSTHYMIC DISORDER
     Dosage: 75 MG 1X PER 1 DAY, 150 MG 1X PER 1 DAY, 75 MG 1X PER 1 DAY, 37.5 MG 1X PER 1 DAY
     Route: 048
     Dates: start: 20010301, end: 20010401
  7. EFFEXOR XR [Suspect]
     Indication: ANXIETY
     Dosage: 75 MG 1X PER 1 DAY, 150 MG 1X PER 1 DAY, 75 MG 1X PER 1 DAY, 37.5 MG 1X PER 1 DAY
     Route: 048
     Dates: start: 20010401, end: 20050401
  8. EFFEXOR XR [Suspect]
     Indication: DEPRESSION
     Dosage: 75 MG 1X PER 1 DAY, 150 MG 1X PER 1 DAY, 75 MG 1X PER 1 DAY, 37.5 MG 1X PER 1 DAY
     Route: 048
     Dates: start: 20010401, end: 20050401
  9. EFFEXOR XR [Suspect]
     Indication: DYSTHYMIC DISORDER
     Dosage: 75 MG 1X PER 1 DAY, 150 MG 1X PER 1 DAY, 75 MG 1X PER 1 DAY, 37.5 MG 1X PER 1 DAY
     Route: 048
     Dates: start: 20010401, end: 20050401
  10. EFFEXOR XR [Suspect]
     Indication: ANXIETY
     Dosage: 75 MG 1X PER 1 DAY, 150 MG 1X PER 1 DAY, 75 MG 1X PER 1 DAY, 37.5 MG 1X PER 1 DAY
     Route: 048
     Dates: start: 20050401
  11. EFFEXOR XR [Suspect]
     Indication: DEPRESSION
     Dosage: 75 MG 1X PER 1 DAY, 150 MG 1X PER 1 DAY, 75 MG 1X PER 1 DAY, 37.5 MG 1X PER 1 DAY
     Route: 048
     Dates: start: 20050401
  12. EFFEXOR XR [Suspect]
     Indication: DYSTHYMIC DISORDER
     Dosage: 75 MG 1X PER 1 DAY, 150 MG 1X PER 1 DAY, 75 MG 1X PER 1 DAY, 37.5 MG 1X PER 1 DAY
     Route: 048
     Dates: start: 20050401

REACTIONS (1)
  - GINGIVAL RECESSION [None]
